FAERS Safety Report 8529651 (Version 3)
Quarter: 2013Q2

REPORT INFORMATION
  Report Type: Spontaneous
  Country: US (occurrence: US)
  Receive Date: 20120425
  Receipt Date: 20130516
  Transmission Date: 20140414
  Serious: Yes (Hospitalization, Other)
  Sender: FDA-Public Use
  Company Number: US-ROCHE-1061666

PATIENT
  Age: 12 Year
  Sex: Female
  Weight: 52.21 kg

DRUGS (4)
  1. ACCUTANE [Suspect]
     Indication: ACNE
     Route: 065
     Dates: start: 20020101, end: 20021001
  2. ACCUTANE [Suspect]
     Route: 065
     Dates: start: 20030320, end: 20030821
  3. ACCUTANE [Suspect]
     Route: 065
     Dates: start: 20040210, end: 20040731
  4. YAZ [Concomitant]
     Indication: CONTRACEPTION

REACTIONS (10)
  - Crohn^s disease [Unknown]
  - Inflammatory bowel disease [Unknown]
  - Depression [Unknown]
  - Injury [Unknown]
  - Large intestine polyp [Unknown]
  - Irritable bowel syndrome [Unknown]
  - Dry skin [Unknown]
  - Chapped lips [Unknown]
  - Blood triglycerides increased [Unknown]
  - Cheilitis [Unknown]
